FAERS Safety Report 4884122-7 (Version None)
Quarter: 2006Q1

REPORT INFORMATION
  Report Type: 
  Country: None (occurrence: None)
  Receive Date: 20060118
  Receipt Date: 20051005
  Transmission Date: 20060701
  Serious: Yes (Hospitalization)
  Sender: FDA-Public Use
  Company Number: US-MERCK-0510USA04659

PATIENT
  Age: 40 Year
  Sex: Male
  Weight: 89 kg

DRUGS (2)
  1. VIOXX [Suspect]
     Route: 048
     Dates: start: 20040101, end: 20040101
  2. MAXAIR [Concomitant]
     Route: 065

REACTIONS (1)
  - CARDIAC DISORDER [None]
